FAERS Safety Report 9854518 (Version 1)
Quarter: 2014Q1

REPORT INFORMATION
  Report Type: Spontaneous
  Country: US (occurrence: US)
  Receive Date: 20140130
  Receipt Date: 20140130
  Transmission Date: 20141002
  Serious: No
  Sender: FDA-Public Use
  Company Number: US-BIOGENIDEC-2014BI007410

PATIENT
  Sex: Female
  Weight: 108 kg

DRUGS (11)
  1. TECFIDERA [Suspect]
     Indication: MULTIPLE SCLEROSIS
     Route: 048
     Dates: start: 20140110
  2. VITAMIN B12 [Concomitant]
  3. IRON [Concomitant]
  4. KEPPRA [Concomitant]
  5. FLEXERIL [Concomitant]
  6. METOPROLOL [Concomitant]
  7. PRILOSEC [Concomitant]
  8. POTASSIUM [Concomitant]
  9. SYNTHROID [Concomitant]
  10. TORSEMIDE [Concomitant]
  11. XANAX [Concomitant]

REACTIONS (1)
  - Fatigue [Unknown]
